FAERS Safety Report 10019862 (Version 2)
Quarter: 2014Q2

REPORT INFORMATION
  Report Type: Spontaneous
  Country: US (occurrence: US)
  Receive Date: 20140318
  Receipt Date: 20140618
  Transmission Date: 20141212
  Serious: No
  Sender: FDA-Public Use
  Company Number: US-GALDERMA-US14000105

PATIENT
  Age: 84 Year
  Sex: Male

DRUGS (9)
  1. MIRVASO (BRIMONIDINE) TOPICAL GEL, 0.33% [Suspect]
     Indication: ERYTHEMA
     Dosage: 0.33%
     Route: 061
     Dates: start: 20131210, end: 20131228
  2. METFORMIN [Concomitant]
     Indication: DIABETES MELLITUS
     Route: 048
  3. GLIMEPIRIDE [Concomitant]
     Indication: DIABETES MELLITUS
     Route: 048
  4. PRAVACHOL (PRAVASTATIN) [Concomitant]
     Indication: BLOOD CHOLESTEROL
     Route: 048
  5. NORVASC (AMLODIPINE) [Concomitant]
     Indication: HYPERTENSION
     Route: 048
  6. MONOPRIL (FOSINOPRIL) [Concomitant]
     Indication: HYPERTENSION
     Route: 048
  7. HYDROCHLOROTHIAZIDE [Concomitant]
     Indication: HYPERTENSION
     Route: 048
  8. ASPIRIN [Concomitant]
     Indication: HYPERTENSION
     Dosage: 81 MG
     Route: 048
  9. LAC HYDRIN CREAM [Concomitant]
     Indication: DRY SKIN
     Route: 061

REACTIONS (2)
  - Drug ineffective for unapproved indication [Not Recovered/Not Resolved]
  - Off label use [Recovered/Resolved]
